FAERS Safety Report 9110360 (Version 1)
Quarter: 2013Q1

REPORT INFORMATION
  Report Type: Spontaneous
  Country: US (occurrence: US)
  Receive Date: 20130219
  Receipt Date: 20130219
  Transmission Date: 20140127
  Serious: Yes (Other)
  Sender: FDA-Public Use
  Company Number: US-BRISTOL-MYERS SQUIBB COMPANY-16574329

PATIENT
  Age: 49 Year
  Sex: Female
  Weight: 58.96 kg

DRUGS (1)
  1. ORENCIA [Suspect]
     Route: 042
     Dates: start: 201008, end: 201104

REACTIONS (2)
  - H1N1 influenza [Unknown]
  - Sinusitis [Unknown]
